FAERS Safety Report 12255392 (Version 1)
Quarter: 2016Q2

REPORT INFORMATION
  Report Type: Spontaneous
  Country: US (occurrence: US)
  Receive Date: 20160412
  Receipt Date: 20160412
  Transmission Date: 20160815
  Serious: Yes (Other)
  Sender: FDA-Public Use
  Company Number: US-ASTRAZENECA-2016SE38022

PATIENT
  Age: 65 Year
  Sex: Female
  Weight: 117.9 kg

DRUGS (29)
  1. LEXAPRO [Concomitant]
     Active Substance: ESCITALOPRAM OXALATE
  2. OMEGA 3 FISH OIL [Concomitant]
     Active Substance: FISH OIL\OMEGA-3 FATTY ACIDS
  3. KLOR-CON M20 [Concomitant]
     Active Substance: POTASSIUM CHLORIDE
  4. TESSALONE PERLES [Concomitant]
  5. AMBIEN [Concomitant]
     Active Substance: ZOLPIDEM TARTRATE
  6. BIAXIN [Concomitant]
     Active Substance: CLARITHROMYCIN
  7. ZETIN [Concomitant]
  8. FUROSEMIDE. [Concomitant]
     Active Substance: FUROSEMIDE
  9. ALPRAZOLAM. [Concomitant]
     Active Substance: ALPRAZOLAM
     Indication: ANXIETY
     Dosage: 1 EVERY SIX HOURS AS REQUIRED
  10. METOLAZONE. [Concomitant]
     Active Substance: METOLAZONE
     Indication: WEIGHT INCREASED
     Dosage: 1 X DAILY AS NEEDED FOR 2 DAYS
  11. YEAST [Concomitant]
     Active Substance: YEAST
  12. LASIX [Concomitant]
     Active Substance: FUROSEMIDE
     Indication: FLUID RETENTION
     Dosage: DAILY
  13. TOPROL XL [Suspect]
     Active Substance: METOPROLOL SUCCINATE
     Route: 048
  14. SYMBICORT [Suspect]
     Active Substance: BUDESONIDE\FORMOTEROL FUMARATE DIHYDRATE
     Dosage: UNKNOWN DOSE AND FREQUENCY
     Route: 055
  15. XYZAL [Concomitant]
     Active Substance: LEVOCETIRIZINE DIHYDROCHLORIDE
  16. SOMA [Concomitant]
     Active Substance: CARISOPRODOL
  17. FLAXSEED [Concomitant]
     Active Substance: FLAX SEED
  18. GLUCOSAMINE [Concomitant]
     Active Substance: GLUCOSAMINE
  19. ALLERGY MEDICATION [Concomitant]
     Active Substance: DIPHENHYDRAMINE HYDROCHLORIDE
     Indication: HYPERSENSITIVITY
  20. DARVOSET-N [Concomitant]
     Indication: PAIN
  21. DIOVAN [Concomitant]
     Active Substance: VALSARTAN
  22. IBUPROFEN. [Concomitant]
     Active Substance: IBUPROFEN
  23. MORPHINE [Concomitant]
     Active Substance: MORPHINE
  24. NUBANE [Concomitant]
  25. ATACAND [Suspect]
     Active Substance: CANDESARTAN CILEXETIL
     Indication: CARDIAC DISORDER
     Route: 048
  26. ATACAND [Suspect]
     Active Substance: CANDESARTAN CILEXETIL
     Indication: BLOOD PRESSURE ABNORMAL
     Route: 048
  27. POTASSIUM [Concomitant]
     Active Substance: POTASSIUM
     Indication: NUTRITIONAL SUPPLEMENTATION
     Dosage: DAILY
  28. NEXIUM [Suspect]
     Active Substance: ESOMEPRAZOLE MAGNESIUM
     Indication: HIATUS HERNIA
     Route: 048
  29. TRAMADOL / ULTRAM [Concomitant]

REACTIONS (6)
  - Product use issue [Unknown]
  - Foot fracture [Unknown]
  - Off label use [Unknown]
  - Swelling [Unknown]
  - Ligament sprain [Unknown]
  - Pain [Unknown]

NARRATIVE: CASE EVENT DATE: 2012
